FAERS Safety Report 9798287 (Version 1)
Quarter: 2014Q1

REPORT INFORMATION
  Report Type: Spontaneous
  Country: US (occurrence: None)
  Receive Date: 20140102
  Receipt Date: 20140102
  Transmission Date: 20141002
  Serious: No
  Sender: FDA-Public Use
  Company Number: None

PATIENT
  Age: 62 Year
  Sex: Female

DRUGS (16)
  1. XELJANZ [Suspect]
     Indication: RHEUMATOID ARTHRITIS
     Dosage: 1 TABLET, BID, PO
     Route: 048
  2. ACTONEL [Concomitant]
  3. FERROUS SULFATE [Concomitant]
  4. FOLIC ACID [Concomitant]
  5. GABAPENTIN [Concomitant]
  6. KETOROLAC TROMETHAMINE [Concomitant]
  7. LISINOPRIL [Concomitant]
  8. LORTAB [Concomitant]
  9. MELOXICAM [Concomitant]
  10. METHOTREXATE [Concomitant]
  11. OMEPRAZOLE [Concomitant]
  12. OXYBUTNIN CHLORIDE [Concomitant]
  13. SIMVASTATIN [Concomitant]
  14. SULFAZINE [Concomitant]
  15. TRAZODONE [Concomitant]
  16. XELJANZ [Concomitant]

REACTIONS (1)
  - Neuropathy peripheral [None]
